FAERS Safety Report 9151109 (Version 1)
Quarter: 2013Q1

REPORT INFORMATION
  Report Type: Spontaneous
  Country: MT (occurrence: None)
  Receive Date: 20130201
  Receipt Date: 20130201
  Transmission Date: 20140127
  Serious: Yes (Hospitalization)
  Sender: FDA-Public Use
  Company Number: 1577296

PATIENT
  Age: 83 Year
  Sex: Female

DRUGS (2)
  1. PAMIDRONIC ACID [Suspect]
     Indication: HYPERCALCAEMIA
     Route: 042
  2. NORMAL SALINE [Concomitant]

REACTIONS (1)
  - Calciphylaxis [None]
